FAERS Safety Report 7502693-9 (Version None)
Quarter: 2011Q2

REPORT INFORMATION
  Report Type: 
  Country: None (occurrence: None)
  Receive Date: 20110525
  Receipt Date: 20110513
  Transmission Date: 20111010
  Serious: Yes (Hospitalization)
  Sender: FDA-Public Use
  Company Number: PHHY2011DK41790

PATIENT
  Sex: Female

DRUGS (5)
  1. ACTAVIS [Concomitant]
  2. HYDROCHLOROTHIAZIDE [Suspect]
     Indication: HYPERTENSION
     Dosage: 1 DF, QD
     Dates: start: 20100201, end: 20110201
  3. MOXONIDINE [Concomitant]
  4. ADALAT [Concomitant]
  5. CENTYL [Concomitant]

REACTIONS (8)
  - VISION BLURRED [None]
  - FATIGUE [None]
  - URTICARIA [None]
  - HEADACHE [None]
  - ALOPECIA [None]
  - DYSPNOEA [None]
  - TINNITUS [None]
  - PARAESTHESIA [None]
